FAERS Safety Report 8069872-6 (Version None)
Quarter: 2012Q1

REPORT INFORMATION
  Report Type: 
  Country: None (occurrence: None)
  Receive Date: 20120125
  Receipt Date: 20120117
  Transmission Date: 20120608
  Serious: Yes (Hospitalization)
  Sender: FDA-Public Use
  Company Number: US-US-EMD SERONO, INC.-7093435

PATIENT
  Sex: Male
  Weight: 113 kg

DRUGS (11)
  1. REBIF [Suspect]
     Indication: MULTIPLE SCLEROSIS
     Route: 058
     Dates: start: 20110914, end: 20111010
  2. LITHIUM [Concomitant]
     Indication: BECKER'S MUSCULAR DYSTROPHY
  3. NEURONTIN [Concomitant]
     Indication: NEUROPATHY PERIPHERAL
  4. CYMBALTA [Concomitant]
     Indication: DEPRESSION
     Dates: start: 20120105
  5. REBIF [Suspect]
     Route: 058
     Dates: start: 20111031
  6. PROVENTIL GENTLEHALER [Concomitant]
     Indication: ASTHMA
  7. NOVOLOG [Concomitant]
     Indication: DIABETES MELLITUS
  8. LANTUS [Concomitant]
     Indication: DIABETES MELLITUS
  9. LYRICA [Concomitant]
     Indication: PAIN
  10. LISINOPRIL [Concomitant]
     Indication: HYPERTENSION
  11. MICARDIS [Concomitant]
     Indication: HYPERTENSION

REACTIONS (5)
  - RESPIRATORY FAILURE [None]
  - ASPIRATION [None]
  - PNEUMONIA [None]
  - ARTHRALGIA [None]
  - INJECTION SITE MASS [None]
